FAERS Safety Report 8956139 (Version 1)
Quarter: 2012Q4

REPORT INFORMATION
  Report Type: 
  Country: CA (occurrence: CA)
  Receive Date: 20121210
  Receipt Date: 20121210
  Transmission Date: 20130627
  Serious: Yes (Other)
  Sender: FDA-Public Use
  Company Number: PHHY2012CA113431

PATIENT
  Age: 26 Year
  Sex: Male

DRUGS (5)
  1. TEGRETOL [Suspect]
     Dosage: 300 mg, UNK
  2. TEGRETOL [Suspect]
     Dosage: 600 mg, UNK
  3. TEGRETOL [Suspect]
     Dosage: 300 UNK, UNK
  4. EPIVAL [Concomitant]
     Dosage: 1500 mg, UNK
  5. SEROQUEL [Concomitant]
     Dosage: 200 mg, UNK

REACTIONS (2)
  - Convulsion [Unknown]
  - Abnormal behaviour [Unknown]
